FAERS Safety Report 11849262 (Version 1)
Quarter: 2015Q4

REPORT INFORMATION
  Report Type: Spontaneous
  Country: None (occurrence: None)
  Receive Date: 20151217
  Receipt Date: 20151217
  Transmission Date: 20160305
  Serious: Yes (Hospitalization)
  Sender: FDA-Public Use
  Company Number: None

PATIENT
  Age: 54 Year
  Sex: Female
  Weight: 153.32 kg

DRUGS (1)
  1. CANAGLIFLOZIN 300MG [Suspect]
     Active Substance: CANAGLIFLOZIN
     Indication: DIABETES MELLITUS INADEQUATE CONTROL
     Route: 048
     Dates: start: 20150702, end: 20151204

REACTIONS (5)
  - Dehydration [None]
  - Diarrhoea [None]
  - Hypophagia [None]
  - Creatinine renal clearance decreased [None]
  - Nausea [None]

NARRATIVE: CASE EVENT DATE: 20151205
